FAERS Safety Report 8301276-0 (Version None)
Quarter: 2012Q2

REPORT INFORMATION
  Report Type: 
  Country: None (occurrence: None)
  Receive Date: 20120420
  Receipt Date: 20120410
  Transmission Date: 20120825
  Serious: Yes (Death, Hospitalization)
  Sender: FDA-Public Use
  Company Number: CH-CELGENEUS-151-21880-12012516

PATIENT
  Age: 73 Year
  Sex: Male

DRUGS (11)
  1. REVLIMID [Suspect]
     Dosage: 5 MILLIGRAM
     Route: 048
     Dates: start: 20120131, end: 20120217
  2. RITUXIMAB [Suspect]
     Indication: DIFFUSE LARGE B-CELL LYMPHOMA
     Dosage: 750 MILLIGRAM
     Route: 041
     Dates: start: 20111219, end: 20120213
  3. BENDAMUSTINE [Suspect]
     Indication: DIFFUSE LARGE B-CELL LYMPHOMA
     Dosage: 140 MILLIGRAM
     Route: 041
     Dates: start: 20111219, end: 20120214
  4. REVLIMID [Suspect]
     Indication: DIFFUSE LARGE B-CELL LYMPHOMA
     Dosage: 10 MILLIGRAM
     Route: 048
     Dates: start: 20111219, end: 20120125
  5. FRAGMIN [Concomitant]
     Dosage: 18000IE
     Route: 058
     Dates: start: 20120218
  6. ASPIRIN [Concomitant]
     Dosage: 100 MILLIGRAM
     Route: 048
     Dates: start: 20120206
  7. SOLU-CORTEF [Concomitant]
     Route: 037
     Dates: start: 20111219
  8. CYTARABINE [Concomitant]
     Route: 037
     Dates: start: 20120103
  9. CYTARABINE [Concomitant]
     Dosage: 50 MILLIGRAM
     Route: 037
     Dates: start: 20111219
  10. SOLU-CORTEF [Concomitant]
     Route: 037
     Dates: start: 20120103
  11. REVLIMID [Suspect]
     Dosage: 5 MILLIGRAM
     Route: 048
     Dates: end: 20120304

REACTIONS (11)
  - ARACHNOIDITIS [None]
  - PLATELET DISORDER [None]
  - HEADACHE [None]
  - DIARRHOEA [None]
  - PNEUMONIA [None]
  - NEUTROPHIL COUNT ABNORMAL [None]
  - VOMITING [None]
  - VITREOUS HAEMORRHAGE [None]
  - PNEUMONITIS [None]
  - FATIGUE [None]
  - ATRIAL FLUTTER [None]
